FAERS Safety Report 4780322-5 (Version None)
Quarter: 2005Q3

REPORT INFORMATION
  Report Type: 
  Country: None (occurrence: None)
  Receive Date: 20050914
  Receipt Date: 20040729
  Transmission Date: 20060218
  Serious: Yes (Other)
  Sender: FDA-Public Use
  Company Number: 163-20785-04070685

PATIENT
  Age: 55 Year
  Sex: Male
  Weight: 85.2762 kg

DRUGS (5)
  1. THALOMID [Suspect]
     Indication: BRAIN NEOPLASM
     Dosage: 200 MG, DAILY, ORAL
     Route: 048
     Dates: start: 20040701, end: 20040727
  2. PROCARBAZINE (PROCARBAZINE) [Suspect]
     Indication: BRAIN NEOPLASM
     Dosage: 500 MG, X 5 DAYS,
  3. COUMADIN [Concomitant]
  4. VITAMIN B6 [Concomitant]
  5. KYTRIL [Concomitant]

REACTIONS (1)
  - SYNCOPE [None]
